FAERS Safety Report 9472124 (Version 1)
Quarter: 2013Q3

REPORT INFORMATION
  Report Type: Spontaneous
  Country: US (occurrence: US)
  Receive Date: 20130823
  Receipt Date: 20130823
  Transmission Date: 20140515
  Serious: No
  Sender: FDA-Public Use
  Company Number: US-009507513-1308USA007164

PATIENT
  Sex: Female

DRUGS (2)
  1. NASONEX [Suspect]
     Dosage: UNK
     Dates: start: 20130814
  2. AZELASTINE HYDROCHLORIDE [Concomitant]
     Dosage: ^9 DOSAGE^

REACTIONS (2)
  - Dizziness [Not Recovered/Not Resolved]
  - Asthenia [Not Recovered/Not Resolved]
